FAERS Safety Report 14783305 (Version 2)
Quarter: 2019Q2

REPORT INFORMATION
  Report Type: Spontaneous
  Country: US (occurrence: US)
  Receive Date: 20180420
  Receipt Date: 20190520
  Transmission Date: 20190711
  Serious: Yes (Other)
  Sender: FDA-Public Use
  Company Number: US-CONCORDIA PHARMACEUTICALS INC.-GSH201804-001308

PATIENT
  Age: 17 Year
  Sex: Male

DRUGS (2)
  1. DEXTROAMPHETAMINE. [Suspect]
     Active Substance: DEXTROAMPHETAMINE
     Indication: SUICIDE ATTEMPT
     Dosage: UP TO 25 CAPSULES
  2. CLONIDINE TABLET [Suspect]
     Active Substance: CLONIDINE
     Indication: SUICIDE ATTEMPT
     Dosage: UP TO 25 TABLETS

REACTIONS (9)
  - Nausea [Recovering/Resolving]
  - Hypertensive emergency [Recovering/Resolving]
  - Headache [Recovering/Resolving]
  - Fatigue [Unknown]
  - Posterior reversible encephalopathy syndrome [Unknown]
  - Photophobia [Unknown]
  - Confusional state [Unknown]
  - Toxicity to various agents [Unknown]
  - Bradycardia [Recovering/Resolving]
